FAERS Safety Report 13066742 (Version 2)
Quarter: 2017Q1

REPORT INFORMATION
  Report Type: Spontaneous
  Country: US (occurrence: US)
  Receive Date: 20161227
  Receipt Date: 20170208
  Transmission Date: 20170428
  Serious: No
  Sender: FDA-Public Use
  Company Number: US-PFIZER INC-2016596081

PATIENT
  Sex: Female

DRUGS (4)
  1. LORAZEPAM. [Concomitant]
     Active Substance: LORAZEPAM
     Dosage: 1 MG
  2. LYRICA [Suspect]
     Active Substance: PREGABALIN
     Indication: TREMOR
  3. LYRICA [Suspect]
     Active Substance: PREGABALIN
     Indication: PAIN IN EXTREMITY
     Dosage: 50 MG, UNK
     Route: 048
     Dates: start: 2000
  4. DILANTIN [Concomitant]
     Active Substance: PHENYTOIN
     Dosage: 250 MG, FOUR TIMES A DAY

REACTIONS (2)
  - Intentional product use issue [Unknown]
  - Drug ineffective [Unknown]
